FAERS Safety Report 20213896 (Version 1)
Quarter: 2021Q4

REPORT INFORMATION
  Report Type: Spontaneous
  Country: US (occurrence: None)
  Receive Date: 20211221
  Receipt Date: 20211221
  Transmission Date: 20220304
  Serious: Yes (Hospitalization)
  Sender: FDA-Public Use
  Company Number: None

PATIENT
  Age: 56 Year
  Sex: Female

DRUGS (1)
  1. XIFAXAN [Suspect]
     Active Substance: RIFAXIMIN
     Indication: Hepatic cirrhosis
     Dosage: FREQUENCY : TWICE A DAY;?
     Route: 048
     Dates: start: 20170331

REACTIONS (3)
  - Spinal operation [None]
  - Fall [None]
  - Lower limb fracture [None]

NARRATIVE: CASE EVENT DATE: 20211130
